FAERS Safety Report 13595052 (Version 2)
Quarter: 2017Q2

REPORT INFORMATION
  Report Type: Report from Study
  Country: AT (occurrence: AT)
  Receive Date: 20170531
  Receipt Date: 20170614
  Transmission Date: 20170830
  Serious: Yes (Hospitalization)
  Sender: FDA-Public Use
  Company Number: AT-ROCHE-1940742

PATIENT
  Age: 75 Year
  Sex: Female
  Weight: 82 kg

DRUGS (9)
  1. BEVACIZUMAB [Suspect]
     Active Substance: BEVACIZUMAB
     Indication: METASTATIC GASTRIC CANCER
     Dosage: MOST RECENT DOSE PRIOR TO ONSET OF EVENT ON 16/MAY/2017
     Route: 042
     Dates: start: 20110614
  2. CARVEDILOL. [Concomitant]
     Active Substance: CARVEDILOL
     Dosage: 1-0-2, ONGOING
     Route: 065
     Dates: start: 20121219, end: 20170521
  3. MEXALEN [Concomitant]
     Active Substance: ACETAMINOPHEN
     Dosage: PRN, ONGOING
     Route: 065
     Dates: start: 20160726
  4. SEVIKAR HCT [Concomitant]
     Active Substance: AMLODIPINE BESYLATE\HYDROCHLOROTHIAZIDE\OLMESARTAN MEDOXOMIL
     Dosage: 1-0-0, ONGOING
     Route: 065
     Dates: start: 20170524
  5. PANTOLOC [Concomitant]
     Active Substance: PANTOPRAZOLE SODIUM
     Dosage: 1-0-0, ONGOING
     Route: 065
     Dates: start: 20110620
  6. CARVEDILOL. [Concomitant]
     Active Substance: CARVEDILOL
     Dosage: 1-0-1, ONGOING
     Route: 065
     Dates: start: 20170522
  7. ITERIUM [Concomitant]
     Active Substance: RILMENIDINE
     Dosage: 0-1-1, ONGOING
     Route: 065
     Dates: start: 20161102
  8. OLEOVIT [Concomitant]
     Dosage: 1-0-0
     Route: 065
     Dates: start: 20110704
  9. SEVIKAR [Concomitant]
     Active Substance: AMLODIPINE BESYLATE\OLMESARTAN MEDOXOMIL
     Dosage: 1-0-0
     Route: 065
     Dates: start: 20161102, end: 20170523

REACTIONS (1)
  - Vestibular neuronitis [Recovered/Resolved]

NARRATIVE: CASE EVENT DATE: 20170520
